FAERS Safety Report 18496852 (Version 2)
Quarter: 2020Q4

REPORT INFORMATION
  Report Type: Spontaneous
  Country: GB (occurrence: GB)
  Receive Date: 20201112
  Receipt Date: 20201120
  Transmission Date: 20210114
  Serious: Yes (Hospitalization, Other)
  Sender: FDA-Public Use
  Company Number: GB-MYLANLABS-2020M1094212

PATIENT
  Age: 32 Year
  Sex: Male

DRUGS (1)
  1. CLOZARIL [Suspect]
     Active Substance: CLOZAPINE
     Indication: SCHIZOPHRENIA
     Dosage: 250 MILLIGRAM, QD
     Route: 048
     Dates: start: 20111006

REACTIONS (6)
  - Encephalitis [Unknown]
  - Product dose omission issue [Unknown]
  - Malaise [Unknown]
  - Syncope [Unknown]
  - Antipsychotic drug level increased [Unknown]
  - Seizure [Unknown]

NARRATIVE: CASE EVENT DATE: 201908
